FAERS Safety Report 5146159-2 (Version None)
Quarter: 2006Q4

REPORT INFORMATION
  Report Type: 
  Country: None (occurrence: None)
  Receive Date: 20061108
  Receipt Date: 20061011
  Transmission Date: 20070319
  Serious: Yes (Hospitalization)
  Sender: FDA-Public Use
  Company Number: DE-ROCHE-466959

PATIENT
  Age: 66 Year
  Sex: Female

DRUGS (4)
  1. BONIVA [Suspect]
     Indication: OSTEOPOROSIS
     Route: 042
     Dates: start: 20060817, end: 20060817
  2. PANTOZOL [Concomitant]
     Indication: ILL-DEFINED DISORDER
     Route: 048
     Dates: start: 20060814, end: 20060821
  3. OPIPRAMOL [Concomitant]
     Indication: ANXIETY
     Route: 048
     Dates: start: 20060814
  4. METOPROLOL TARTRATE [Concomitant]
     Indication: HYPERTENSION
     Route: 048
     Dates: start: 20030615

REACTIONS (1)
  - MULTIPLE SCLEROSIS [None]
